FAERS Safety Report 10371626 (Version 1)
Quarter: 2014Q3

REPORT INFORMATION
  Report Type: Spontaneous
  Country: US (occurrence: None)
  Receive Date: 20140807
  Receipt Date: 20140807
  Transmission Date: 20150326
  Serious: Yes (Disabling)
  Sender: FDA-Public Use
  Company Number: None

PATIENT
  Age: 69 Year
  Sex: Male
  Weight: 74.84 kg

DRUGS (7)
  1. MULTIVITAMIN [Concomitant]
     Active Substance: VITAMINS
  2. SINGULAIR [Concomitant]
     Active Substance: MONTELUKAST SODIUM
  3. NASONEX [Concomitant]
     Active Substance: MOMETASONE FUROATE
  4. OCCUVITE [Concomitant]
  5. WALKER SEAT [Concomitant]
     Active Substance: DEVICE
  6. FISH OIL [Concomitant]
     Active Substance: FISH OIL
  7. ATORVASTATIN [Suspect]
     Active Substance: ATORVASTATIN
     Indication: BLOOD CHOLESTEROL INCREASED
     Dosage: 2 PILLS  2 X DAILY  BY MOUTH
     Route: 048
     Dates: start: 20110510, end: 20140715

REACTIONS (11)
  - Chromaturia [None]
  - Fall [None]
  - Muscle injury [None]
  - Fatigue [None]
  - Back disorder [None]
  - Amnesia [None]
  - Injury [None]
  - Muscle spasms [None]
  - Constipation [None]
  - Arthralgia [None]
  - Diarrhoea [None]

NARRATIVE: CASE EVENT DATE: 20140511
